FAERS Safety Report 13814095 (Version 1)
Quarter: 2017Q3

REPORT INFORMATION
  Report Type: Spontaneous
  Country: PT (occurrence: PT)
  Receive Date: 20170731
  Receipt Date: 20170731
  Transmission Date: 20171127
  Serious: Yes (Other)
  Sender: FDA-Public Use
  Company Number: PT-ACCORD-056263

PATIENT
  Age: 22 Year
  Sex: Female

DRUGS (1)
  1. MITOMYCIN. [Suspect]
     Active Substance: MITOMYCIN
     Indication: TRABECULECTOMY
     Dosage: 0.4 MG/ML OD

REACTIONS (2)
  - Maculopathy [Recovered/Resolved]
  - Hypotony of eye [Recovered/Resolved]
